FAERS Safety Report 16318014 (Version 1)
Quarter: 2019Q2

REPORT INFORMATION
  Report Type: Spontaneous
  Country: IT (occurrence: IT)
  Receive Date: 20190516
  Receipt Date: 20190516
  Transmission Date: 20190711
  Serious: Yes (Hospitalization)
  Sender: FDA-Public Use
  Company Number: IT-TEVA-2019-IT-1049647

PATIENT
  Age: 17 Year
  Sex: Female

DRUGS (4)
  1. FLUOXETINE HYDROCHLORIDE. [Suspect]
     Active Substance: FLUOXETINE HYDROCHLORIDE
     Indication: DRUG ABUSE
     Route: 048
     Dates: start: 20180730, end: 20180730
  2. ASPIRINA 325 MG COMPRESSE [Suspect]
     Active Substance: ASPIRIN
     Indication: DRUG ABUSE
     Route: 048
     Dates: start: 20180730, end: 20180730
  3. PAFINUR [Suspect]
     Active Substance: RUPATADINE FUMARATE
     Indication: DRUG ABUSE
     Route: 048
     Dates: start: 20180730, end: 20180730
  4. SERTRALINE HYDROCHLORIDE. [Suspect]
     Active Substance: SERTRALINE HYDROCHLORIDE
     Indication: DRUG ABUSE
     Route: 048
     Dates: start: 20180730, end: 20180730

REACTIONS (3)
  - Drug abuse [Recovered/Resolved with Sequelae]
  - Vomiting [Recovered/Resolved with Sequelae]
  - Abdominal pain [Recovered/Resolved with Sequelae]

NARRATIVE: CASE EVENT DATE: 20180730
